FAERS Safety Report 7765345-6 (Version None)
Quarter: 2011Q3

REPORT INFORMATION
  Report Type: 
  Country: None (occurrence: None)
  Receive Date: 20110921
  Receipt Date: 20110912
  Transmission Date: 20111222
  Serious: Yes (Death)
  Sender: FDA-Public Use
  Company Number: US-MYLANLABS-2009S1015696

PATIENT
  Age: 41 Year
  Sex: Male
  Weight: 108.41 kg

DRUGS (21)
  1. FENTANYL-100 [Suspect]
     Indication: PAIN
     Dosage: CHANGES PATCHES Q2D
     Route: 062
     Dates: end: 20071002
  2. GABAPENTIN [Concomitant]
  3. OXYCODONE/ACETAMINOPHEN [Concomitant]
  4. INSULIN [Concomitant]
  5. VENLAFAXINE HYDROCHLORIDE [Concomitant]
  6. LOVASTATIN [Concomitant]
  7. SERTRALINE HYDROCHLORIDE [Concomitant]
  8. DOXEPIN [Concomitant]
  9. NORTRIPTYLINE HCL [Concomitant]
  10. LISINOPRIL [Concomitant]
  11. ASPIRIN [Concomitant]
  12. HYDROCODONE BITARTRATE AND ACETAMINOPHEN [Concomitant]
  13. METOCLOPRAMIDE [Concomitant]
  14. AMITRIPTYLINE HCL [Concomitant]
  15. MINOCYCLINE HCL [Concomitant]
  16. AMOXICILLIN [Concomitant]
  17. DIPHENHYDRAMINE HCL [Concomitant]
  18. OMEPRAZOLE [Concomitant]
  19. VARDENAFIL HYDROCHLORIDE (LEVITRA) [Concomitant]
  20. ETODOLAC [Concomitant]
  21. BUPROPION HCL [Concomitant]

REACTIONS (1)
  - TOXICITY TO VARIOUS AGENTS [None]
